FAERS Safety Report 9092632 (Version 2)
Quarter: 2013Q1

REPORT INFORMATION
  Report Type: Spontaneous
  Country: IN (occurrence: IN)
  Receive Date: 20130131
  Receipt Date: 20130214
  Transmission Date: 20140127
  Serious: Yes (Death, Other)
  Sender: FDA-Public Use
  Company Number: IN-BRISTOL-MYERS SQUIBB COMPANY-17317744

PATIENT
  Age: 55 Year
  Sex: Male

DRUGS (1)
  1. BARACLUDE TABS 0.5 MG [Suspect]
     Dates: start: 20090716, end: 20130117

REACTIONS (2)
  - Cardiac arrest [Fatal]
  - Depression [Unknown]
